FAERS Safety Report 22247379 (Version 2)
Quarter: 2023Q2

REPORT INFORMATION
  Report Type: Spontaneous
  Country: DE (occurrence: DE)
  Receive Date: 20230425
  Receipt Date: 20230614
  Transmission Date: 20230722
  Serious: Yes (Hospitalization)
  Sender: FDA-Public Use
  Company Number: DE-BIOGEN-2023BI01201143

PATIENT
  Age: 40 Year
  Sex: Male

DRUGS (1)
  1. TYSABRI [Suspect]
     Active Substance: NATALIZUMAB
     Indication: Multiple sclerosis
     Route: 050

REACTIONS (1)
  - Femoral neck fracture [Not Recovered/Not Resolved]

NARRATIVE: CASE EVENT DATE: 20230418
